FAERS Safety Report 5339621-0 (Version None)
Quarter: 2007Q2

REPORT INFORMATION
  Report Type: 
  Country: None (occurrence: None)
  Receive Date: 20070525
  Receipt Date: 20070525
  Transmission Date: 20071010
  Serious: Yes (Life-Threatening, Hospitalization)
  Sender: FDA-Public Use
  Company Number: None

PATIENT
  Age: 24 Year
  Sex: Male
  Weight: 103.8737 kg

DRUGS (1)
  1. ISOTRETINOIN [Suspect]
     Dosage: DAILY ORAL
     Route: 048

REACTIONS (1)
  - PULMONARY EMBOLISM [None]
